FAERS Safety Report 14650587 (Version 1)
Quarter: 2018Q1

REPORT INFORMATION
  Report Type: Spontaneous
  Country: US (occurrence: US)
  Receive Date: 20180316
  Receipt Date: 20180316
  Transmission Date: 20180509
  Serious: Yes (Hospitalization)
  Sender: FDA-Public Use
  Company Number: US-ENDO PHARMACEUTICALS INC-201404061

PATIENT
  Age: 53 Year
  Sex: Male
  Weight: 97.05 kg

DRUGS (13)
  1. DEPO-TESTOSTERONE [Suspect]
     Active Substance: TESTOSTERONE CYPIONATE
     Indication: BLOOD TESTOSTERONE DECREASED
     Dosage: UNK UNKNOWN, UNKNOWN
     Route: 030
     Dates: start: 201002, end: 2014
  2. VITAMINS NOS [Concomitant]
     Active Substance: VITAMINS
     Dosage: UNK UNKNOWN, UNK
  3. PANTOPRAZOLE [Concomitant]
     Active Substance: PANTOPRAZOLE
     Dosage: UNK UNKNOWN, DAILY
     Route: 065
  4. LISINOPRIL TABLETS [Concomitant]
     Active Substance: LISINOPRIL
     Dosage: UNK UNK, DAILY
     Route: 065
  5. DEPO-TESTOSTERONE [Suspect]
     Active Substance: TESTOSTERONE CYPIONATE
     Dosage: UNK UNKNOWN, UNKNOWN
     Route: 065
     Dates: start: 201002, end: 201107
  6. TESTOPEL [Suspect]
     Active Substance: TESTOSTERONE
     Indication: BLOOD TESTOSTERONE DECREASED
     Dosage: UNK UNKNOWN, UNKNOWN
     Dates: start: 20110826, end: 20120830
  7. WARFARIN [Concomitant]
     Active Substance: WARFARIN
  8. CALCIUM CARBONATE. [Concomitant]
     Active Substance: CALCIUM CARBONATE
     Dosage: 600 MG, DAILY
     Route: 065
  9. ASPIRIN. [Concomitant]
     Active Substance: ASPIRIN
     Dosage: UNK UNKNOWN, DAILY
     Route: 065
  10. ROSUVASTATIN. [Concomitant]
     Active Substance: ROSUVASTATIN
     Dosage: UNK UNKNOWN, DAILY
     Route: 065
  11. TESTOPEL [Suspect]
     Active Substance: TESTOSTERONE
     Dosage: IMPLANT
     Dates: start: 201202
  12. ANDROGEL [Suspect]
     Active Substance: TESTOSTERONE
     Indication: BLOOD TESTOSTERONE DECREASED
     Dosage: 1 PUMP TOPICALLY TO UPPER ARM AND SHOULDER EACH DAY
     Route: 061
     Dates: start: 20090820, end: 201001
  13. METOPROLOL. [Concomitant]
     Active Substance: METOPROLOL
     Dosage: 25 MG, DAILY

REACTIONS (2)
  - Acute myocardial infarction [Unknown]
  - Myocardial infarction [Unknown]

NARRATIVE: CASE EVENT DATE: 20120419
